FAERS Safety Report 9109091 (Version 1)
Quarter: 2013Q1

REPORT INFORMATION
  Report Type: Spontaneous
  Country: US (occurrence: US)
  Receive Date: 20130222
  Receipt Date: 20130222
  Transmission Date: 20140127
  Serious: No
  Sender: FDA-Public Use
  Company Number: US-ASTRAZENECA-2013SE10628

PATIENT
  Age: 71 Year
  Sex: Female

DRUGS (5)
  1. NEXIUM [Suspect]
     Indication: GASTROOESOPHAGEAL REFLUX DISEASE
     Route: 048
  2. CRESTOR [Suspect]
     Dosage: 3 TIMES PER WEEK
     Route: 048
     Dates: start: 20130211
  3. LEVATHYROXINE [Concomitant]
     Indication: THYROID DISORDER
  4. LOVASA [Concomitant]
  5. MERCAZAPINE [Concomitant]
     Indication: ANTIDEPRESSANT THERAPY

REACTIONS (2)
  - Abdominal pain [Not Recovered/Not Resolved]
  - Off label use [Unknown]
